FAERS Safety Report 6046671-8 (Version None)
Quarter: 2009Q1

REPORT INFORMATION
  Report Type: 
  Country: None (occurrence: None)
  Receive Date: 20090122
  Receipt Date: 20090121
  Transmission Date: 20090719
  Serious: Yes (Life-Threatening)
  Sender: FDA-Public Use
  Company Number: FR-WYE-G01632008

PATIENT
  Sex: Male
  Weight: 80 kg

DRUGS (8)
  1. TORISEL [Suspect]
     Indication: METASTATIC RENAL CELL CARCINOMA
     Dosage: 26 MG
     Route: 042
     Dates: start: 20080318, end: 20080318
  2. TORISEL [Suspect]
     Dosage: 25 MG
     Route: 042
     Dates: start: 20080326, end: 20080326
  3. CORTANCYL [Concomitant]
     Indication: ALLERGY PROPHYLAXIS
     Dosage: 80 MG THE DAY BEFORE THE INFUSION OF TORISEL
     Route: 048
     Dates: start: 20080325, end: 20080325
  4. CORTANCYL [Concomitant]
     Dosage: 80 MG IN THE MORNING AND THEN ONE DOSE (UNKNOWN) 30 MIN BEFORE THE INFUSION OF TORISEL
     Route: 042
     Dates: start: 20080326, end: 20080326
  5. DURAGESIC-100 [Concomitant]
     Indication: PAIN
     Dosage: 25 UG STRENGTH; DOSE UNKNOWN
     Route: 062
  6. POLARAMINE [Concomitant]
     Indication: ALLERGY PROPHYLAXIS
     Dosage: 5 MG; 2 HOURS BEFORE TORISEL INFUSION
     Route: 042
     Dates: start: 20080318, end: 20080318
  7. POLARAMINE [Concomitant]
     Dosage: 6 MG THE DAY BEFORE THE INFUSION OF TORISEL
     Dates: start: 20080325, end: 20080325
  8. POLARAMINE [Concomitant]
     Dosage: 6 MG IN THE MORNING AND THEN ONE DOSE (UNKNOWN) 30 MIN BEFORE THE INFUSION OF TORISEL
     Dates: start: 20080326, end: 20080326

REACTIONS (3)
  - ANAPHYLACTIC SHOCK [None]
  - CHEST DISCOMFORT [None]
  - INFUSION SITE PAIN [None]
